FAERS Safety Report 7722826-9 (Version None)
Quarter: 2011Q3

REPORT INFORMATION
  Report Type: 
  Country: None (occurrence: None)
  Receive Date: 20110901
  Receipt Date: 20110823
  Transmission Date: 20111222
  Serious: No
  Sender: FDA-Public Use
  Company Number: US-BIOGENIDEC-2010BI043738

PATIENT
  Sex: Female

DRUGS (2)
  1. TYSABRI [Suspect]
     Indication: MULTIPLE SCLEROSIS
     Route: 042
     Dates: start: 20090602
  2. VESICARE [Concomitant]
     Indication: URINARY INCONTINENCE

REACTIONS (17)
  - INSOMNIA [None]
  - URINARY INCONTINENCE [None]
  - MUSCULOSKELETAL STIFFNESS [None]
  - DYSGRAPHIA [None]
  - FATIGUE [None]
  - FALL [None]
  - GAIT DISTURBANCE [None]
  - CRYING [None]
  - ACCIDENT [None]
  - ASTHENIA [None]
  - MUSCULAR WEAKNESS [None]
  - CONTUSION [None]
  - LOSS OF CONSCIOUSNESS [None]
  - HEADACHE [None]
  - SCAR [None]
  - MOBILITY DECREASED [None]
  - SCRATCH [None]
